FAERS Safety Report 4428380-1 (Version None)
Quarter: 2004Q3

REPORT INFORMATION
  Report Type: 
  Country: None (occurrence: None)
  Receive Date: 20040818
  Receipt Date: 20040811
  Transmission Date: 20050211
  Serious: Yes (Other)
  Sender: FDA-Public Use
  Company Number: 200412536EU

PATIENT
  Age: 66 Year
  Sex: Male

DRUGS (4)
  1. ARAVA [Suspect]
     Indication: RHEUMATOID ARTHRITIS
     Route: 048
  2. LEDERTREXATE [Suspect]
     Indication: RHEUMATOID ARTHRITIS
     Route: 030
  3. PIROMED DISPERS [Concomitant]
     Indication: DRUG USE FOR UNKNOWN INDICATION
  4. FOLIUMACID [Concomitant]
     Indication: DRUG USE FOR UNKNOWN INDICATION

REACTIONS (1)
  - MONOCYTOSIS [None]
